FAERS Safety Report 10435832 (Version 1)
Quarter: 2014Q3

REPORT INFORMATION
  Report Type: Spontaneous
  Country: US (occurrence: None)
  Receive Date: 20140905
  Receipt Date: 20140905
  Transmission Date: 20150326
  Serious: Yes (Hospitalization)
  Sender: FDA-Public Use
  Company Number: None

PATIENT
  Age: 83 Year
  Sex: Female
  Weight: 55.9 kg

DRUGS (17)
  1. ADVAIR HFA [Concomitant]
     Active Substance: FLUTICASONE PROPIONATE\SALMETEROL XINAFOATE
  2. PREMARIN [Concomitant]
     Active Substance: ESTROGENS, CONJUGATED
  3. WARFARIN 4 MG [Suspect]
     Active Substance: WARFARIN
  4. ACETAMINOPHEN. [Concomitant]
     Active Substance: ACETAMINOPHEN
  5. SPIRONOLACTONE. [Concomitant]
     Active Substance: SPIRONOLACTONE
  6. TRAZODOEN [Concomitant]
  7. METOPROLOL SUCCINATE. [Concomitant]
     Active Substance: METOPROLOL SUCCINATE
  8. PROAIR HFA [Concomitant]
     Active Substance: ALBUTEROL SULFATE
  9. LEVOTHYROXINE [Concomitant]
     Active Substance: LEVOTHYROXINE
  10. SERTRALINE [Concomitant]
     Active Substance: SERTRALINE HYDROCHLORIDE
  11. METHOTREXATE [Concomitant]
     Active Substance: METHOTREXATE
  12. VITAMIN D [Concomitant]
     Active Substance: CHOLECALCIFEROL
  13. BETAMETHASONE [Concomitant]
     Active Substance: BETAMETHASONE
  14. FOLIC ACID. [Concomitant]
     Active Substance: FOLIC ACID
  15. MELOXICAM. [Concomitant]
     Active Substance: MELOXICAM
  16. SIMVASTATIN. [Concomitant]
     Active Substance: SIMVASTATIN
  17. FUROSEMIDE. [Concomitant]
     Active Substance: FUROSEMIDE

REACTIONS (5)
  - International normalised ratio increased [None]
  - Incorrect dose administered [None]
  - Treatment noncompliance [None]
  - Confusional state [None]
  - Haematoma [None]

NARRATIVE: CASE EVENT DATE: 20140902
